FAERS Safety Report 14138730 (Version 19)
Quarter: 2022Q1

REPORT INFORMATION
  Report Type: Report from Study
  Country: US (occurrence: US)
  Receive Date: 20171027
  Receipt Date: 20220107
  Transmission Date: 20220423
  Serious: Yes (Other)
  Sender: FDA-Public Use
  Company Number: US-JAZZ-2017-US-014146

PATIENT
  Age: 61 Year
  Sex: Female

DRUGS (36)
  1. XYREM [Suspect]
     Active Substance: SODIUM OXYBATE
     Indication: Narcolepsy
     Dosage: 3 G, BID
     Route: 048
     Dates: start: 200804, end: 200805
  2. XYREM [Suspect]
     Active Substance: SODIUM OXYBATE
     Indication: Cataplexy
     Dosage: 4.5 G, FIRST DOSE
     Route: 048
     Dates: start: 200805, end: 200811
  3. XYREM [Suspect]
     Active Substance: SODIUM OXYBATE
     Dosage: 3 G, SECOND DOSE
     Route: 048
     Dates: start: 200805, end: 200811
  4. XYREM [Suspect]
     Active Substance: SODIUM OXYBATE
     Dosage: 4.5 G, BID
     Route: 048
     Dates: start: 200811, end: 202101
  5. ALPRAZOLAM [Suspect]
     Active Substance: ALPRAZOLAM
     Indication: Product used for unknown indication
     Dosage: UNK
     Dates: start: 20050221
  6. OMEPRAZOLE [Suspect]
     Active Substance: OMEPRAZOLE
     Indication: Product used for unknown indication
  7. LINZESS [Suspect]
     Active Substance: LINACLOTIDE
     Indication: Product used for unknown indication
  8. MYLANTA [Suspect]
     Active Substance: ALUMINUM HYDROXIDE\DIMETHICONE\MAGNESIUM HYDROXIDE
     Indication: Dyspepsia
  9. SERTRALINE [Suspect]
     Active Substance: SERTRALINE HYDROCHLORIDE
     Indication: Product used for unknown indication
     Dosage: UNK
     Dates: start: 20151217, end: 20151217
  10. CYMBALTA [Concomitant]
     Active Substance: DULOXETINE HYDROCHLORIDE
     Indication: Product used for unknown indication
     Dosage: UNK
     Dates: start: 20151217, end: 20151217
  11. CYTOMEL [Concomitant]
     Active Substance: LIOTHYRONINE SODIUM
     Indication: Product used for unknown indication
     Dosage: UNK
     Dates: start: 20151217
  12. DEXEDRINE [Concomitant]
     Active Substance: DEXTROAMPHETAMINE SULFATE
     Indication: Product used for unknown indication
     Dosage: UNK
     Dates: start: 20151217
  13. EPIPEN [Concomitant]
     Active Substance: EPINEPHRINE
     Indication: Product used for unknown indication
     Dosage: UNK
     Dates: start: 20151217
  14. PREMARIN [Concomitant]
     Active Substance: ESTROGENS, CONJUGATED
     Indication: Product used for unknown indication
     Dosage: UNK
     Dates: start: 20151217, end: 20151217
  15. THYROID [Concomitant]
     Active Substance: LEVOTHYROXINE\LIOTHYRONINE
     Indication: Product used for unknown indication
     Dosage: UNK
     Dates: start: 20151217, end: 20151217
  16. BIOTIN [Concomitant]
     Active Substance: BIOTIN
     Indication: Product used for unknown indication
     Dosage: UNK
     Dates: start: 20151210
  17. COENZYME Q10 [Concomitant]
     Active Substance: DIETARY SUPPLEMENT\UBIDECARENONE
     Indication: Product used for unknown indication
     Dosage: UNK
     Dates: start: 20151210
  18. DEPLIN [Concomitant]
     Active Substance: LEVOMEFOLATE CALCIUM
     Indication: Product used for unknown indication
     Dosage: UNK
     Dates: start: 20151210
  19. DEXTROAMPHETAMINE [Concomitant]
     Active Substance: DEXTROAMPHETAMINE
     Indication: Product used for unknown indication
     Dosage: UNK
     Dates: start: 20151210
  20. ESTRADIOL [Concomitant]
     Active Substance: ESTRADIOL
     Indication: Product used for unknown indication
     Dosage: UNK
     Dates: start: 20151210
  21. FORTEO [Concomitant]
     Active Substance: TERIPARATIDE
     Indication: Product used for unknown indication
     Dosage: UNK
     Dates: start: 20151210, end: 20151217
  22. FUROSEMIDE [Concomitant]
     Active Substance: FUROSEMIDE
     Indication: Product used for unknown indication
     Dosage: UNK
     Dates: start: 20151210, end: 20151217
  23. GRAPESEED [Concomitant]
     Indication: Product used for unknown indication
     Dosage: UNK
     Dates: start: 20151210
  24. LEVOTHYROXINE [Concomitant]
     Active Substance: LEVOTHYROXINE
     Indication: Product used for unknown indication
     Dosage: UNK
     Dates: start: 20151210
  25. ACETYLCYSTEINE [Concomitant]
     Active Substance: ACETYLCYSTEINE
     Indication: Product used for unknown indication
     Dosage: UNK
     Dates: start: 20151210
  26. HYDROXYCHLOROQUINE DIPHOSPHATE [Concomitant]
     Active Substance: HYDROXYCHLOROQUINE DIPHOSPHATE
     Indication: Product used for unknown indication
     Dosage: UNK
     Dates: start: 20151210
  27. POTASSIUM CHLORIDE [Concomitant]
     Active Substance: POTASSIUM CHLORIDE
     Indication: Product used for unknown indication
     Dosage: UNK
     Dates: start: 20151210, end: 20151217
  28. RETIN-A [Concomitant]
     Active Substance: TRETINOIN
     Indication: Product used for unknown indication
     Dosage: UNK
     Dates: start: 20151210
  29. SELENIUM [Concomitant]
     Active Substance: SELENIUM
     Indication: Product used for unknown indication
     Dosage: UNK
     Dates: start: 20151210
  30. VITAMIN B12 [Concomitant]
     Active Substance: CYANOCOBALAMIN
     Indication: Product used for unknown indication
     Dosage: UNK
     Dates: start: 20151210
  31. ERGOCALCIFEROL [Concomitant]
     Active Substance: ERGOCALCIFEROL
     Indication: Product used for unknown indication
     Dosage: UNK
     Dates: start: 20151210
  32. XANAX [Concomitant]
     Active Substance: ALPRAZOLAM
     Indication: Product used for unknown indication
     Dosage: UNK
     Dates: start: 20151210
  33. GRALISE [Concomitant]
     Active Substance: GABAPENTIN
     Indication: Product used for unknown indication
     Dosage: UNK
     Dates: start: 20150105, end: 20151210
  34. LASIX [Concomitant]
     Active Substance: FUROSEMIDE
     Indication: Product used for unknown indication
  35. ESTRING [Concomitant]
     Active Substance: ESTRADIOL
     Indication: Product used for unknown indication
  36. KETOTIFEN [Concomitant]
     Active Substance: KETOTIFEN
     Indication: Product used for unknown indication

REACTIONS (13)
  - Sjogren^s syndrome [Not Recovered/Not Resolved]
  - Barrett^s oesophagus [Not Recovered/Not Resolved]
  - Gastrooesophageal reflux disease [Not Recovered/Not Resolved]
  - Gastrointestinal ulcer [Unknown]
  - Blood pressure decreased [Unknown]
  - Raynaud^s phenomenon [Not Recovered/Not Resolved]
  - Dental caries [Not Recovered/Not Resolved]
  - Gastritis [Not Recovered/Not Resolved]
  - Dyspepsia [Unknown]
  - Tooth extraction [Unknown]
  - Drug interaction [Unknown]
  - Disorientation [Unknown]
  - Diarrhoea [Unknown]

NARRATIVE: CASE EVENT DATE: 20160107
